FAERS Safety Report 5614992-6 (Version None)
Quarter: 2008Q1

REPORT INFORMATION
  Report Type: 
  Country: None (occurrence: None)
  Receive Date: 20080206
  Receipt Date: 20080129
  Transmission Date: 20080703
  Serious: Yes (Other)
  Sender: FDA-Public Use
  Company Number: PHBS2008US01567

PATIENT
  Age: 54 Year
  Sex: Female

DRUGS (3)
  1. ZOLEDRONIC ACID [Suspect]
     Indication: METASTASES TO BONE
  2. RADIOTHERAPY [Concomitant]
  3. CHEMOTHERAPEUTICS NOS [Concomitant]
     Indication: BREAST CANCER

REACTIONS (4)
  - BIOPSY BONE ABNORMAL [None]
  - BONE SCAN ABNORMAL [None]
  - OSTEONECROSIS [None]
  - POSITRON EMISSION TOMOGRAM ABNORMAL [None]
